FAERS Safety Report 15869560 (Version 2)
Quarter: 2019Q1

REPORT INFORMATION
  Report Type: Report from Study
  Country: None (occurrence: TR)
  Receive Date: 20190125
  Receipt Date: 20190325
  Transmission Date: 20190417
  Serious: Yes (Hospitalization)
  Sender: FDA-Public Use
  Company Number: TR-ABBVIE-19S-161-2634586-00

PATIENT
  Age: 66 Year
  Sex: Male

DRUGS (11)
  1. APIDRA SOLOSTAR PEN [Concomitant]
     Indication: DIABETES MELLITUS
     Dosage: ALTERED DOSES DEPENDING ON CALCULATED BLOOD SUGAR LEVEL
     Route: 058
     Dates: start: 20180529
  2. TIOPATI [Concomitant]
     Indication: PARKINSON^S DISEASE
     Route: 048
  3. JANUMET [Concomitant]
     Active Substance: METFORMIN HYDROCHLORIDE\SITAGLIPTIN PHOSPHATE
     Indication: DIABETES MELLITUS
     Dosage: METFORMIN/1000MG SITAGLIPTIN /50 MG
     Route: 048
     Dates: start: 20180907
  4. ALYSE [Concomitant]
     Indication: PARKINSON^S DISEASE
     Route: 048
  5. DUODOPA [Suspect]
     Active Substance: CARBIDOPA\LEVODOPA
     Indication: PARKINSON^S DISEASE
     Dosage: MD(ML): 4,30, CD(ML): 3,40, ED(ML): 1,00
     Route: 050
     Dates: start: 20180529
  6. MOTILIUM [Concomitant]
     Active Substance: DOMPERIDONE
     Indication: PROPHYLAXIS
     Route: 048
     Dates: start: 201805
  7. LANTUS SOLOSTAR [Concomitant]
     Active Substance: INSULIN GLARGINE
     Indication: DIABETES MELLITUS
     Dosage: ALTERED DOSES DEPENDING ON CALCULATED BLOOD SUGAR LEVEL
     Route: 058
     Dates: start: 20180529
  8. CONTRAMAL AMPOULE [Concomitant]
     Indication: ANALGESIC THERAPY
     Dosage: AS NEEDED
     Route: 030
     Dates: start: 201811
  9. DIKLORON AMPOULE [Concomitant]
     Indication: ANALGESIC THERAPY
     Dosage: AS NEEDED
     Route: 030
     Dates: start: 201811
  10. ECOPRIN [Concomitant]
     Indication: PROPHYLAXIS
     Route: 048
     Dates: start: 20180529
  11. REQUIP [Concomitant]
     Active Substance: ROPINIROLE HYDROCHLORIDE
     Indication: PARKINSON^S DISEASE
     Route: 048
     Dates: start: 20180906

REACTIONS (3)
  - Urinary tract infection [Recovered/Resolved]
  - C-reactive protein increased [Recovered/Resolved]
  - Red blood cell sedimentation rate increased [Recovered/Resolved]

NARRATIVE: CASE EVENT DATE: 20190121
